FAERS Safety Report 14010963 (Version 1)
Quarter: 2017Q3

REPORT INFORMATION
  Report Type: Spontaneous
  Country: US (occurrence: US)
  Receive Date: 20170925
  Receipt Date: 20170925
  Transmission Date: 20171128
  Serious: Yes (Life-Threatening, Hospitalization)
  Sender: FDA-Public Use
  Company Number: None

PATIENT
  Age: 77 Year
  Sex: Male
  Weight: 81.4 kg

DRUGS (1)
  1. NIVOLUMAB [Suspect]
     Active Substance: NIVOLUMAB
     Indication: SQUAMOUS CELL CARCINOMA OF THE TONGUE
     Dosage: ?          OTHER FREQUENCY:DAY1+15 OF 28D CYC;?
     Route: 042
     Dates: start: 20170825, end: 20170908

REACTIONS (3)
  - Respiratory failure [None]
  - Eyelid ptosis [None]
  - Myasthenia gravis [None]

NARRATIVE: CASE EVENT DATE: 20170921
